FAERS Safety Report 17823702 (Version 3)
Quarter: 2020Q4

REPORT INFORMATION
  Report Type: Spontaneous
  Country: US (occurrence: US)
  Receive Date: 20200526
  Receipt Date: 20201103
  Transmission Date: 20210113
  Serious: No
  Sender: FDA-Public Use
  Company Number: US-PFIZER INC-2020203558

PATIENT
  Age: 46 Year
  Sex: Female

DRUGS (1)
  1. XELJANZ [Suspect]
     Active Substance: TOFACITINIB CITRATE
     Indication: RHEUMATOID ARTHRITIS
     Dosage: 5 MG, 2X/DAY
     Route: 048
     Dates: start: 20200413, end: 20200725

REACTIONS (4)
  - Drug ineffective [Unknown]
  - Product dose omission issue [Unknown]
  - Abdominal pain upper [Recovered/Resolved]
  - Epigastric discomfort [Recovered/Resolved]

NARRATIVE: CASE EVENT DATE: 2020
